FAERS Safety Report 9067850 (Version 3)
Quarter: 2013Q4

REPORT INFORMATION
  Report Type: Report from Study
  Country: US (occurrence: US)
  Receive Date: 20130215
  Receipt Date: 20131122
  Transmission Date: 20140711
  Serious: Yes (Death, Hospitalization)
  Sender: FDA-Public Use
  Company Number: US-BIOGENIDEC-2013BI012424

PATIENT
  Age: 62 Year
  Sex: Female

DRUGS (4)
  1. TYSABRI [Suspect]
     Indication: MULTIPLE SCLEROSIS
     Route: 042
     Dates: start: 20080131, end: 20110915
  2. CITALOPRAM [Concomitant]
  3. DILANTIN [Concomitant]
  4. PROTONIX [Concomitant]

REACTIONS (1)
  - Pneumonia [Fatal]
